FAERS Safety Report 16406168 (Version 1)
Quarter: 2019Q2

REPORT INFORMATION
  Report Type: Spontaneous
  Country: US (occurrence: US)
  Receive Date: 20190607
  Receipt Date: 20190607
  Transmission Date: 20190711
  Serious: No
  Sender: FDA-Public Use
  Company Number: US-ALLERGAN-1836420US

PATIENT
  Sex: Female

DRUGS (6)
  1. XELJANZ [Concomitant]
     Active Substance: TOFACITINIB CITRATE
     Indication: RHEUMATOID ARTHRITIS
     Dosage: UNK
  2. VIBERZI [Suspect]
     Active Substance: ELUXADOLINE
     Indication: IRRITABLE BOWEL SYNDROME
     Dosage: 100 MG, BID
     Route: 065
     Dates: start: 201802
  3. HYDROXYCHLOROQUINE [Concomitant]
     Active Substance: HYDROXYCHLOROQUINE
     Indication: RHEUMATOID ARTHRITIS
     Dosage: 200 MG, BID
  4. VIBERZI [Suspect]
     Active Substance: ELUXADOLINE
     Dosage: 100 MG, QD
     Route: 065
  5. VIBERZI [Suspect]
     Active Substance: ELUXADOLINE
     Dosage: QD (HALF A TABLET DAILY)
     Route: 065
  6. VIBERZI [Suspect]
     Active Substance: ELUXADOLINE
     Dosage: QOD (1/2 TABLET EVERY OTHER DAY)
     Route: 065
     Dates: start: 201803, end: 201807

REACTIONS (6)
  - Diarrhoea [Unknown]
  - Inappropriate schedule of product administration [Unknown]
  - Diverticulitis [Unknown]
  - Wrong technique in product usage process [Unknown]
  - Abdominal pain [Unknown]
  - Constipation [Unknown]

NARRATIVE: CASE EVENT DATE: 201807
